FAERS Safety Report 15837675 (Version 3)
Quarter: 2019Q1

REPORT INFORMATION
  Report Type: Spontaneous
  Country: JP (occurrence: JP)
  Receive Date: 20190117
  Receipt Date: 20190212
  Transmission Date: 20190417
  Serious: Yes (Hospitalization, Other)
  Sender: FDA-Public Use
  Company Number: JP-ASTRAZENECA-2019SE06192

PATIENT
  Age: 29334 Day
  Sex: Female
  Weight: 50 kg

DRUGS (16)
  1. NIFEDIPINE. [Concomitant]
     Active Substance: NIFEDIPINE
     Indication: HYPERTENSION
     Route: 048
  2. LIPOVAS [Concomitant]
     Active Substance: PRAVASTATIN SODIUM
     Route: 048
  3. BISOPROLOL FUMARATE. [Concomitant]
     Active Substance: BISOPROLOL FUMARATE
     Indication: CARDIAC FAILURE
     Dosage: AFTER BREAKFAST
     Route: 048
  4. ETIZOLAM [Concomitant]
     Active Substance: ETIZOLAM
     Indication: INSOMNIA
     Route: 048
  5. ZOLPIDEM TARTRATE. [Concomitant]
     Active Substance: ZOLPIDEM TARTRATE
     Indication: INSOMNIA
     Dosage: BEFORE BEDTIME
     Route: 048
  6. SILECE [Concomitant]
     Active Substance: FLUNITRAZEPAM
     Dosage: BEFORE BEDTIME
     Route: 048
  7. FOSAMAC [Concomitant]
     Active Substance: ALENDRONATE SODIUM
     Dosage: AT THE TIME OF AWAKENING
     Route: 048
  8. TAGRISSO [Suspect]
     Active Substance: OSIMERTINIB
     Indication: NON-SMALL CELL LUNG CANCER
     Route: 048
     Dates: start: 20181129, end: 20181217
  9. CLOPIDOGREL [Concomitant]
     Active Substance: CLOPIDOGREL BISULFATE
     Indication: ANGINA PECTORIS
     Route: 048
  10. MAGMITT [Concomitant]
     Active Substance: MAGNESIUM OXIDE
     Indication: CONSTIPATION
     Dosage: AFTER BREAKFAST AND EVENING MEAL
     Route: 048
  11. LANSOPRAZOLE. [Concomitant]
     Active Substance: LANSOPRAZOLE
     Indication: PROPHYLAXIS AGAINST GASTROINTESTINAL ULCER
     Route: 048
  12. TRICHLORMETHIAZIDE [Concomitant]
     Active Substance: TRICHLORMETHIAZIDE
     Indication: HYPERTENSION
     Route: 048
  13. CARBOCISTEINE LYSINE [Concomitant]
     Active Substance: CARBOCYSTEINE LYSINE
     Indication: BRONCHITIS
     Dosage: AFTER BREAKFAST, LUNCH AND EVENING MEAL
     Route: 048
  14. BAKTAR [Concomitant]
     Active Substance: SULFAMETHOXAZOLE\TRIMETHOPRIM
     Dosage: AFTER BREAKFAST
     Route: 048
  15. TAGRISSO [Suspect]
     Active Substance: OSIMERTINIB
     Indication: NON-SMALL CELL LUNG CANCER
     Dosage: AFTER BREAKFAST
     Route: 048
     Dates: start: 20190105
  16. OLMESARTAN [Concomitant]
     Active Substance: OLMESARTAN
     Indication: HYPERTENSION
     Route: 048

REACTIONS (1)
  - Interstitial lung disease [Recovered/Resolved]

NARRATIVE: CASE EVENT DATE: 20181217
